FAERS Safety Report 7320568-5 (Version None)
Quarter: 2011Q1

REPORT INFORMATION
  Report Type: 
  Country: None (occurrence: None)
  Receive Date: 20110228
  Receipt Date: 20110218
  Transmission Date: 20110831
  Serious: Yes (Hospitalization, Other)
  Sender: FDA-Public Use
  Company Number: US-ASTRAZENECA-2009UW21335

PATIENT
  Age: 747 Month
  Sex: Male
  Weight: 111.1 kg

DRUGS (17)
  1. DOCUSATE [Concomitant]
  2. FLOMAX [Concomitant]
     Indication: PROSTATE CANCER
  3. SEROQUEL [Suspect]
     Indication: SLEEP DISORDER
     Route: 048
     Dates: start: 20081201, end: 20090214
  4. ATENOLOL [Concomitant]
  5. ASA [Concomitant]
  6. SEROQUEL [Suspect]
     Route: 048
     Dates: start: 20090101, end: 20090301
  7. ZOLOFT [Concomitant]
  8. LISINOPRIL [Concomitant]
  9. XANAX [Concomitant]
     Indication: ANXIETY
     Dosage: AS REQUIRED
  10. SEROQUEL [Suspect]
     Indication: NIGHTMARE
     Route: 048
     Dates: start: 20081201, end: 20090214
  11. XANAX [Concomitant]
     Indication: SLEEP DISORDER
     Dosage: AS REQUIRED
  12. SEROQUEL [Suspect]
     Indication: INSOMNIA
     Route: 048
     Dates: start: 20081201, end: 20090214
  13. SEROQUEL [Suspect]
     Route: 048
     Dates: start: 20090101, end: 20090301
  14. SEROQUEL [Suspect]
     Route: 048
     Dates: start: 20090101, end: 20090301
  15. GLIPIZIDE [Concomitant]
  16. SIMVASTATIN [Concomitant]
  17. REFRESH EYE DROPS [Concomitant]
     Indication: GLAUCOMA

REACTIONS (10)
  - FEELING ABNORMAL [None]
  - DYSARTHRIA [None]
  - DISORIENTATION [None]
  - HALLUCINATION [None]
  - PHYSICAL ASSAULT [None]
  - DISTURBANCE IN ATTENTION [None]
  - AGGRESSION [None]
  - DIZZINESS [None]
  - WRONG TECHNIQUE IN DRUG USAGE PROCESS [None]
  - PSYCHOTIC DISORDER [None]
